FAERS Safety Report 19689557 (Version 1)
Quarter: 2021Q3

REPORT INFORMATION
  Report Type: Spontaneous
  Country: US (occurrence: US)
  Receive Date: 20210812
  Receipt Date: 20210812
  Transmission Date: 20211014
  Serious: No
  Sender: FDA-Public Use
  Company Number: US-BAYER-2021-189153

PATIENT
  Age: 85 Year
  Sex: Female

DRUGS (4)
  1. ALEVE [Suspect]
     Active Substance: NAPROXEN SODIUM
     Indication: PAIN
     Dosage: UNK
  2. EXCEDRIN PM HEADACHE [Concomitant]
     Indication: HEADACHE
  3. TYLENOL [Concomitant]
     Active Substance: ACETAMINOPHEN
     Indication: HEADACHE
  4. ASPIRIN (PAIN AND FEVER) [Suspect]
     Active Substance: ASPIRIN
     Indication: HEADACHE

REACTIONS (1)
  - Drug ineffective [None]
